FAERS Safety Report 18600050 (Version 1)
Quarter: 2020Q4

REPORT INFORMATION
  Report Type: Spontaneous
  Country: CN (occurrence: CN)
  Receive Date: 20201210
  Receipt Date: 20201210
  Transmission Date: 20210114
  Serious: Yes (Life-Threatening, Hospitalization)
  Sender: FDA-Public Use
  Company Number: CN-LUPIN PHARMACEUTICALS INC.-2020-10052

PATIENT
  Age: 10 Month
  Sex: Female

DRUGS (5)
  1. TIGECYCLINE. [Suspect]
     Active Substance: TIGECYCLINE
     Dosage: 1 MILLIGRAM/KILOGRAM (MAINTENANCE DOSE)
     Route: 042
  2. NORMAL SALINE [Concomitant]
     Active Substance: SODIUM CHLORIDE
     Indication: VEHICLE SOLUTION USE
     Dosage: UNK
     Route: 065
  3. VANCOMYCIN [Suspect]
     Active Substance: VANCOMYCIN
     Indication: PNEUMONIA
     Dosage: UNK
     Route: 065
  4. SULPERAZONE [Suspect]
     Active Substance: CEFOPERAZONE SODIUM\SULBACTAM SODIUM
     Indication: PNEUMONIA
     Dosage: UNK
     Route: 065
  5. TIGECYCLINE. [Suspect]
     Active Substance: TIGECYCLINE
     Indication: PNEUMONIA
     Dosage: 1.5 MILLIGRAM/KILOGRAM (LOADING DOSE)
     Route: 042

REACTIONS (1)
  - Drug ineffective [Unknown]
